FAERS Safety Report 7629721-4 (Version None)
Quarter: 2011Q3

REPORT INFORMATION
  Report Type: 
  Country: None (occurrence: None)
  Receive Date: 20110722
  Receipt Date: 20110714
  Transmission Date: 20111222
  Serious: Yes (Other)
  Sender: FDA-Public Use
  Company Number: DE-ROCHE-790591

PATIENT
  Age: 65 Year
  Sex: Female

DRUGS (2)
  1. IBANDRONATE SODIUM [Suspect]
     Dosage: DRUG REPORTED AS : IBANDRONAT.  THERAPY DURATION : 16 MONTHS
     Route: 042
     Dates: start: 20050901, end: 20070101
  2. CORTISONE ACETATE [Concomitant]

REACTIONS (2)
  - CYST [None]
  - OSTEONECROSIS OF JAW [None]
